FAERS Safety Report 7386296-5 (Version None)
Quarter: 2011Q1

REPORT INFORMATION
  Report Type: 
  Country: None (occurrence: None)
  Receive Date: 20110331
  Receipt Date: 20110317
  Transmission Date: 20110831
  Serious: Yes (Other)
  Sender: FDA-Public Use
  Company Number: PHHY2011US23092

PATIENT
  Sex: Male
  Weight: 84.807 kg

DRUGS (2)
  1. TASIGNA [Suspect]
     Dosage: 400 MG, QD
     Dates: start: 20100302
  2. TASIGNA [Suspect]
     Indication: CHRONIC MYELOID LEUKAEMIA
     Dates: start: 20100201

REACTIONS (3)
  - ABDOMINAL ABSCESS [None]
  - OSTEOMYELITIS CHRONIC [None]
  - FIBROSIS [None]
